FAERS Safety Report 18557627 (Version 1)
Quarter: 2020Q4

REPORT INFORMATION
  Report Type: Report from Study
  Country: CA (occurrence: CA)
  Receive Date: 20201130
  Receipt Date: 20201130
  Transmission Date: 20210114
  Serious: Yes (Other)
  Sender: FDA-Public Use
  Company Number: CA-JNJFOC-20200946154

PATIENT
  Age: 6 Decade
  Sex: Female

DRUGS (1)
  1. STELARA [Suspect]
     Active Substance: USTEKINUMAB
     Indication: CROHN^S DISEASE
     Dosage: ON 24/SEP/2020 THE PATIENT RECEIVED HER 15 INJECTION OF 90 MILLIGRAM
     Route: 058
     Dates: start: 20180802

REACTIONS (5)
  - Candida infection [Unknown]
  - Weight decreased [Unknown]
  - Fistula discharge [Unknown]
  - Decreased appetite [Unknown]
  - Abdominal infection [Unknown]

NARRATIVE: CASE EVENT DATE: 2020
